FAERS Safety Report 5714445-0 (Version None)
Quarter: 2008Q2

REPORT INFORMATION
  Report Type: 
  Country: None (occurrence: None)
  Receive Date: 20080423
  Receipt Date: 20080410
  Transmission Date: 20081010
  Serious: Yes (Other)
  Sender: FDA-Public Use
  Company Number: BR-AVENTIS-200812385GDDC

PATIENT
  Age: 72 Year
  Sex: Female
  Weight: 61 kg

DRUGS (12)
  1. LANTUS [Suspect]
     Indication: TYPE 2 DIABETES MELLITUS
     Dosage: DOSE: UNK
     Route: 058
  2. LANTUS [Suspect]
     Route: 058
  3. OPTIPEN (INSULIN PUMP) [Suspect]
  4. OPTIPEN (INSULIN PUMP) [Suspect]
     Dates: end: 20080101
  5. AMARYL [Concomitant]
     Dosage: DOSE QUANTITY: 2
     Route: 048
  6. GLIFAGE [Concomitant]
     Dosage: DOSE QUANTITY: 1
     Route: 048
  7. EUTHYROX [Concomitant]
     Indication: HYPOTHYROIDISM
     Route: 048
  8. DIOVAN [Concomitant]
     Indication: BLOOD PRESSURE
     Dosage: DOSE QUANTITY: 1
     Route: 048
  9. NATRILIX                           /00340101/ [Concomitant]
     Indication: BLOOD PRESSURE
     Dosage: DOSE QUANTITY: 1
     Route: 048
  10. SIMVASTATIN [Concomitant]
     Dosage: DOSE QUANTITY: 1
     Route: 048
  11. LEXOTAN [Concomitant]
     Dosage: DOSE QUANTITY: 1
     Route: 048
  12. AAS [Concomitant]
     Dosage: DOSE QUANTITY: 1
     Route: 048

REACTIONS (7)
  - BLOOD GLUCOSE INCREASED [None]
  - BLOOD PRESSURE INCREASED [None]
  - CONDITION AGGRAVATED [None]
  - CONFUSIONAL STATE [None]
  - DIZZINESS [None]
  - PHARMACEUTICAL PRODUCT COMPLAINT [None]
  - SYNCOPE [None]
